FAERS Safety Report 4913115-6 (Version None)
Quarter: 2006Q1

REPORT INFORMATION
  Report Type: 
  Country: None (occurrence: None)
  Receive Date: 20060210
  Receipt Date: 20060126
  Transmission Date: 20060701
  Serious: Yes (Hospitalization)
  Sender: FDA-Public Use
  Company Number: GBR-2006-0002089

PATIENT
  Age: 76 Year
  Sex: Female

DRUGS (16)
  1. MORPHINE SULFATE [Suspect]
     Indication: PAIN
     Dosage: 120 MG, DAILY, ORAL
     Route: 048
  2. XANAX [Suspect]
     Dosage: 3 TABLET, DAILY, ORAL; 2 TABLET, DAILY, ORAL
     Route: 048
  3. NOCTRAN 10 (CLORAZEPATE DIPOTASSIUM, ACEPROMETAZINE, ACEPROMAZINE) [Suspect]
     Dosage: 0.5 TABLET DAILY, ORAL
     Route: 048
  4. PHENOBARBITAL TAB [Suspect]
     Indication: EPILEPSY
     Dosage: 100 MG, DAILY, ORAL
     Route: 048
  5. PRAXILENE (NAFTIDROFURYLOXALATE) [Concomitant]
  6. PAROXETINE HYDROCHLORIDE [Concomitant]
  7. CREON [Concomitant]
  8. OROCAL (CALCIUM CARBONATE) [Concomitant]
  9. INIPOMP (PANTOPRAZOLE) [Concomitant]
  10. ACETAMINOPHEN [Concomitant]
  11. NITRODERM [Concomitant]
  12. ACTONEL [Concomitant]
  13. TRIMEBUTINE (TRIMEBUTINE) [Concomitant]
  14. SPASFON (PHLOROGLUCINOL, TRIMETHYLPHLOROGLUCINOL) [Concomitant]
  15. MOVICOL (MACROGOL, SODIUM CHLORIDE, POTASSIUM CHLORIDE, SODIUM BICARBO [Concomitant]
  16. LOVENOX [Concomitant]

REACTIONS (12)
  - ASTHENIA [None]
  - DRUG INTERACTION [None]
  - FOLATE DEFICIENCY [None]
  - GENERAL PHYSICAL CONDITION [None]
  - GENERAL PHYSICAL CONDITION ABNORMAL [None]
  - HEADACHE [None]
  - HYPERCAPNIA [None]
  - HYPOVENTILATION [None]
  - HYPOXIA [None]
  - MACROCYTOSIS [None]
  - RED BLOOD CELL COUNT DECREASED [None]
  - SOMNOLENCE [None]
